FAERS Safety Report 8295678-9 (Version None)
Quarter: 2012Q2

REPORT INFORMATION
  Report Type: 
  Country: None (occurrence: None)
  Receive Date: 20120416
  Receipt Date: 20120404
  Transmission Date: 20120825
  Serious: Yes (Other)
  Sender: FDA-Public Use
  Company Number: AUR-APL-2012-01714

PATIENT
  Age: 57 Year
  Sex: Male

DRUGS (5)
  1. QUETIAPINE FUMARATE [Concomitant]
  2. LITHIUM CARBONATE [Concomitant]
  3. VENLAFAXINE [Concomitant]
  4. INHALER (SALBUTAMOL SULFATE) [Concomitant]
  5. RISPERIDONE [Suspect]
     Indication: DEPRESSION
     Dosage: 4 MG (2 MG, 2 IN 1 D), ORAL
     Route: 048
     Dates: start: 20111101

REACTIONS (2)
  - ASTHMA [None]
  - CONDITION AGGRAVATED [None]
